FAERS Safety Report 10236375 (Version 1)
Quarter: 2014Q1

REPORT INFORMATION
  Report Type: Spontaneous
  Country: US (occurrence: None)
  Receive Date: 20140306
  Receipt Date: 20140306
  Transmission Date: 20141002
  Serious: Yes (Other)
  Sender: FDA-Public Use
  Company Number: 163-21880-13042077

PATIENT
  Age: 81 Year
  Sex: Female
  Weight: 59.9 kg

DRUGS (3)
  1. REVLIMID(LENALIDOMIDE)(5 MILLIGRAM, CAPSULES) [Suspect]
     Indication: MULTIPLE SCLEROSIS
     Route: 048
     Dates: start: 20110207
  2. EPIDURAL STEROID INJECTIONS(CORTICOSTEROIDS) (UKNOWN) [Concomitant]
  3. ARANESP(DARBEPOET ALFA)(INJECTION) [Concomitant]

REACTIONS (4)
  - Thrombosis [None]
  - Diarrhoea [None]
  - Pain [None]
  - Decreased appetite [None]
